FAERS Safety Report 24606625 (Version 1)
Quarter: 2024Q4

REPORT INFORMATION
  Report Type: Spontaneous
  Country: FR (occurrence: FR)
  Receive Date: 20241112
  Receipt Date: 20241112
  Transmission Date: 20250115
  Serious: Yes (Other)
  Sender: NOVA LABORATORIES LIMITED
  Company Number: FR-Nova Laboratories Limited-2164838

PATIENT
  Age: 14 Year
  Sex: Female

DRUGS (9)
  1. PURIXAN [Suspect]
     Active Substance: MERCAPTOPURINE
     Indication: Acute lymphocytic leukaemia
  2. VINCRISTINE [Suspect]
     Active Substance: VINCRISTINE
  3. DEXAMETHASONE [Suspect]
     Active Substance: DEXAMETHASONE
  4. METHOTREXATE [Suspect]
     Active Substance: METHOTREXATE
  5. MERCAPTOPURINE [Suspect]
     Active Substance: MERCAPTOPURINE
  6. MERCAPTOPURINE [Suspect]
     Active Substance: MERCAPTOPURINE
  7. MERCAPTOPURINE [Suspect]
     Active Substance: MERCAPTOPURINE
  8. MERCAPTOPURINE [Suspect]
     Active Substance: MERCAPTOPURINE
  9. MERCAPTOPURINE [Suspect]
     Active Substance: MERCAPTOPURINE

REACTIONS (9)
  - Neutropenia [Unknown]
  - Prothrombin time shortened [Not Recovered/Not Resolved]
  - Neutrophil count decreased [Unknown]
  - Blood bilirubin increased [Recovered/Resolved]
  - Alanine aminotransferase increased [Recovered/Resolved]
  - Nausea [Unknown]
  - Coagulation factor VII level decreased [Unknown]
  - Coagulation factor V level decreased [Unknown]
  - Abdominal pain [Unknown]
